FAERS Safety Report 6402184-2 (Version None)
Quarter: 2009Q4

REPORT INFORMATION
  Report Type: 
  Country: None (occurrence: None)
  Receive Date: 20091015
  Receipt Date: 20091006
  Transmission Date: 20100525
  Serious: Yes (Other)
  Sender: FDA-Public Use
  Company Number: FR-ASTRAZENECA-2009SE19272

PATIENT
  Sex: Female

DRUGS (3)
  1. DIPRIVAN [Suspect]
     Route: 065
     Dates: start: 19990101
  2. FENTANYL [Suspect]
     Route: 065
     Dates: start: 19990101
  3. ISOFLURANE [Suspect]
     Route: 065
     Dates: start: 19990101

REACTIONS (8)
  - DIZZINESS [None]
  - DYSPHAGIA [None]
  - HEADACHE [None]
  - HORNER'S SYNDROME [None]
  - INSOMNIA [None]
  - NECK PAIN [None]
  - THORACIC OUTLET SYNDROME [None]
  - VISUAL PATHWAY DISORDER [None]
